FAERS Safety Report 7878114-3 (Version None)
Quarter: 2011Q4

REPORT INFORMATION
  Report Type: 
  Country: None (occurrence: None)
  Receive Date: 20111101
  Receipt Date: 20111021
  Transmission Date: 20120403
  Serious: No
  Sender: FDA-Public Use
  Company Number: US-BIOGENIDEC-2011BI040295

PATIENT
  Age: 60 Year
  Sex: Female

DRUGS (4)
  1. AVKAR (NOS) [Concomitant]
     Dates: start: 20110916
  2. AVONEX [Concomitant]
     Indication: MULTIPLE SCLEROSIS
     Route: 030
  3. TYSABRI [Suspect]
     Indication: MULTIPLE SCLEROSIS
     Route: 042
     Dates: start: 20110930
  4. TYSABRI [Suspect]
     Route: 042
     Dates: start: 20071108, end: 20091208

REACTIONS (3)
  - PAIN IN EXTREMITY [None]
  - INFLUENZA LIKE ILLNESS [None]
  - ARTHROPATHY [None]
